FAERS Safety Report 11876985 (Version 6)
Quarter: 2016Q2

REPORT INFORMATION
  Report Type: Report from Study
  Country: CA (occurrence: CA)
  Receive Date: 20151229
  Receipt Date: 20160607
  Transmission Date: 20160815
  Serious: Yes (Hospitalization, Other)
  Sender: FDA-Public Use
  Company Number: CA-GILEAD-2015-0190007

PATIENT
  Age: 58 Year
  Sex: Male

DRUGS (32)
  1. COMBIVENT [Concomitant]
     Active Substance: ALBUTEROL SULFATE\IPRATROPIUM BROMIDE
  2. VIBRAMYCIN [Concomitant]
     Active Substance: DOXYCYCLINE
  3. LACTULOSE. [Concomitant]
     Active Substance: LACTULOSE
  4. ATIVAN [Concomitant]
     Active Substance: LORAZEPAM
  5. SENOKOT                            /00571901/ [Concomitant]
     Active Substance: SENNOSIDES A AND B
  6. FRAGMIN [Concomitant]
     Active Substance: DALTEPARIN SODIUM
  7. VANCOMYCIN [Concomitant]
     Active Substance: VANCOMYCIN
     Indication: CLOSTRIDIUM DIFFICILE INFECTION
     Dosage: UNK
     Dates: end: 201512
  8. CETIRIZINE [Concomitant]
     Active Substance: CETIRIZINE HYDROCHLORIDE
  9. PHOSPHATE                          /01318702/ [Concomitant]
  10. SODIUM BICARBONATE. [Concomitant]
     Active Substance: SODIUM BICARBONATE
  11. CALCIUM GLUCONATE. [Concomitant]
     Active Substance: CALCIUM GLUCONATE
  12. IDELALISIB [Suspect]
     Active Substance: IDELALISIB
     Indication: CHRONIC LYMPHOCYTIC LEUKAEMIA
     Dosage: 150 MG, BID
     Route: 048
     Dates: start: 20151210, end: 20160323
  13. PERIDEX                            /00016001/ [Concomitant]
     Active Substance: DEXAMETHASONE
  14. BACITRACIN. [Concomitant]
     Active Substance: BACITRACIN
  15. FLEET ENEMA MINERAL OIL [Concomitant]
  16. TYLENOL [Concomitant]
     Active Substance: ACETAMINOPHEN
  17. VIOKASE                            /00014701/ [Concomitant]
  18. IDELALISIB [Suspect]
     Active Substance: IDELALISIB
     Dosage: 100 MG, UNK
     Route: 048
     Dates: start: 2016
  19. FUROSEMIDE. [Concomitant]
     Active Substance: FUROSEMIDE
  20. ZANTAC [Concomitant]
     Active Substance: RANITIDINE HYDROCHLORIDE
  21. ZOPICLONE [Concomitant]
     Active Substance: ZOPICLONE
  22. VENTOLIN [Concomitant]
     Active Substance: ALBUTEROL SULFATE
  23. MAGNESIUM SULFATE. [Concomitant]
     Active Substance: MAGNESIUM SULFATE
  24. KCL [Concomitant]
     Active Substance: POTASSIUM CHLORIDE
  25. SENNA                              /00571901/ [Concomitant]
  26. BISACODYL. [Concomitant]
     Active Substance: BISACODYL
  27. SEROQUEL [Concomitant]
     Active Substance: QUETIAPINE FUMARATE
  28. TYLENOL WITH CODEINE [Concomitant]
     Active Substance: ACETAMINOPHEN\CODEINE PHOSPHATE
  29. BENADRYL [Concomitant]
     Active Substance: DIPHENHYDRAMINE HYDROCHLORIDE
  30. FENTANYL. [Concomitant]
     Active Substance: FENTANYL
  31. MIDAZOLAM [Concomitant]
     Active Substance: MIDAZOLAM\MIDAZOLAM HYDROCHLORIDE
  32. SODIUM PHOSPHATE [Concomitant]
     Active Substance: SODIUM PHOSPHATE

REACTIONS (6)
  - Fatigue [Not Recovered/Not Resolved]
  - Infection [Unknown]
  - Transfusion [Unknown]
  - Heart rate increased [Unknown]
  - Depressed mood [Unknown]
  - Pyrexia [Unknown]

NARRATIVE: CASE EVENT DATE: 201512
